FAERS Safety Report 14033088 (Version 2)
Quarter: 2020Q3

REPORT INFORMATION
  Report Type: Spontaneous
  Country: US (occurrence: US)
  Receive Date: 20171003
  Receipt Date: 20200915
  Transmission Date: 20201102
  Serious: No
  Sender: FDA-Public Use
  Company Number: US-PFIZER INC-2017423759

PATIENT
  Age: 61 Year
  Sex: Female

DRUGS (1)
  1. VENLAFAXINE HCL [Suspect]
     Active Substance: VENLAFAXINE HYDROCHLORIDE
     Dosage: 150 MG, DAILY (75 MG / QTY 60 / DAY SUPPLY 30)

REACTIONS (7)
  - Tremor [Unknown]
  - Nervousness [Unknown]
  - Drug ineffective [Unknown]
  - Dizziness [Unknown]
  - Insomnia [Unknown]
  - Abnormal dreams [Unknown]
  - Confusional state [Unknown]
